FAERS Safety Report 6929921-2 (Version None)
Quarter: 2010Q3

REPORT INFORMATION
  Report Type: 
  Country: None (occurrence: None)
  Receive Date: 20100818
  Receipt Date: 20100809
  Transmission Date: 20110219
  Serious: Yes (Hospitalization, Other)
  Sender: FDA-Public Use
  Company Number: CA-JNJFOC-20100802639

PATIENT
  Age: 77 Year
  Sex: Male

DRUGS (1)
  1. TYLENOL W/ CODEINE NO. 3 [Suspect]
     Indication: ARTHRALGIA
     Dosage: PATIENT HAS TAKEN UPTO 100 TABLETS PER MONTH
     Route: 048

REACTIONS (5)
  - CONSTIPATION [None]
  - COUGH [None]
  - DRUG DEPENDENCE [None]
  - RHINORRHOEA [None]
  - URINARY RETENTION [None]
